FAERS Safety Report 15815180 (Version 6)
Quarter: 2022Q2

REPORT INFORMATION
  Report Type: Spontaneous
  Country: GR (occurrence: GR)
  Receive Date: 20190112
  Receipt Date: 20220620
  Transmission Date: 20220721
  Serious: Yes (Death, Life-Threatening, Other)
  Sender: FDA-Public Use
  Company Number: None

PATIENT
  Age: 25 Year
  Sex: Male

DRUGS (11)
  1. QUETIAPINE FUMARATE [Interacting]
     Active Substance: QUETIAPINE FUMARATE
     Indication: Depression
  2. FLUOXETINE [Interacting]
     Active Substance: FLUOXETINE HYDROCHLORIDE
     Indication: Depression
  3. VALPROIC ACID [Interacting]
     Active Substance: VALPROIC ACID
     Indication: Depression
  4. CITALOPRAM [Interacting]
     Active Substance: CITALOPRAM HYDROBROMIDE
     Indication: Depression
  5. ALPRAZOLAM [Interacting]
     Active Substance: ALPRAZOLAM
     Indication: Depression
     Route: 048
  6. MOCLOBEMIDE [Interacting]
     Active Substance: MOCLOBEMIDE
     Indication: Depression
  7. SEROPRAM (CITALOPRAM HYDROBROMIDE) [Interacting]
     Active Substance: CITALOPRAM HYDROBROMIDE
     Indication: Depression
  8. PERINDOPRIL [Interacting]
     Active Substance: PERINDOPRIL
     Indication: Product used for unknown indication
  9. FLURBIPROFEN [Interacting]
     Active Substance: FLURBIPROFEN
  10. DESLORATADINE [Interacting]
     Active Substance: DESLORATADINE
  11. PROPRANOLOL [Interacting]
     Active Substance: PROPRANOLOL HYDROCHLORIDE

REACTIONS (9)
  - Ischaemic cerebral infarction [Fatal]
  - Hypertrophic cardiomyopathy [Fatal]
  - Contraindicated product administered [Fatal]
  - Electrocardiogram QT prolonged [Fatal]
  - Arrhythmia [Fatal]
  - Intentional overdose [Fatal]
  - Sudden death [Fatal]
  - Toxicity to various agents [Fatal]
  - Drug interaction [Fatal]
